FAERS Safety Report 10464241 (Version 1)
Quarter: 2014Q3

REPORT INFORMATION
  Report Type: Spontaneous
  Country: US (occurrence: US)
  Receive Date: 20140919
  Receipt Date: 20140919
  Transmission Date: 20150326
  Serious: No
  Sender: FDA-Public Use
  Company Number: US-BRISTOL-MYERS SQUIBB COMPANY-19139500

PATIENT
  Age: 65 Year
  Sex: Female
  Weight: 97.05 kg

DRUGS (5)
  1. CRESTOR [Concomitant]
     Active Substance: ROSUVASTATIN CALCIUM
  2. ABILIFY [Suspect]
     Active Substance: ARIPIPRAZOLE
  3. LOPERAMIDE [Concomitant]
     Active Substance: LOPERAMIDE
  4. TEGRETOL [Concomitant]
     Active Substance: CARBAMAZEPINE
  5. WARFARIN SODIUM. [Concomitant]
     Active Substance: WARFARIN SODIUM

REACTIONS (2)
  - Weight increased [Unknown]
  - Somnolence [Unknown]
